FAERS Safety Report 12217271 (Version 1)
Quarter: 2016Q1

REPORT INFORMATION
  Report Type: Spontaneous
  Country: DE (occurrence: DE)
  Receive Date: 20160329
  Receipt Date: 20160329
  Transmission Date: 20160526
  Serious: Yes (Hospitalization, Other)
  Sender: FDA-Public Use
  Company Number: DE-DRREDDYS-USA/GER/16/0078204

PATIENT
  Age: 68 Year
  Sex: Male
  Weight: 73 kg

DRUGS (7)
  1. COLCHICINE. [Concomitant]
     Active Substance: COLCHICINE
     Route: 065
  2. COLCHICINE. [Concomitant]
     Active Substance: COLCHICINE
     Indication: GOUT
     Route: 065
  3. RAMIPRIL. [Concomitant]
     Active Substance: RAMIPRIL
     Indication: HYPERTENSION
     Route: 065
  4. ALLOPURINOL. [Suspect]
     Active Substance: ALLOPURINOL
     Indication: GOUT
     Route: 065
  5. COLCHICINE. [Concomitant]
     Active Substance: COLCHICINE
     Route: 065
  6. AMLODIPINE [Concomitant]
     Active Substance: AMLODIPINE BESYLATE
     Indication: HYPERTENSION
     Route: 065
  7. GABAPENTIN. [Concomitant]
     Active Substance: GABAPENTIN
     Indication: EPILEPSY
     Route: 065

REACTIONS (9)
  - Night sweats [Unknown]
  - Weight decreased [Unknown]
  - Polyarthritis [Unknown]
  - Gouty tophus [Recovering/Resolving]
  - General physical health deterioration [Unknown]
  - Inflammation [Unknown]
  - Pyrexia [Unknown]
  - Nephrolithiasis [Unknown]
  - Gout [Recovered/Resolved]

NARRATIVE: CASE EVENT DATE: 20131002
